FAERS Safety Report 12702814 (Version 1)
Quarter: 2016Q3

REPORT INFORMATION
  Report Type: Spontaneous
  Country: HU (occurrence: HU)
  Receive Date: 20160831
  Receipt Date: 20160831
  Transmission Date: 20161109
  Serious: Yes (Death)
  Sender: FDA-Public Use
  Company Number: HU-SUN PHARMACEUTICAL INDUSTRIES LTD-2016R1-123069

PATIENT
  Age: 66 Year
  Sex: Male

DRUGS (6)
  1. GEMCITABINE [Suspect]
     Active Substance: GEMCITABINE\GEMCITABINE HYDROCHLORIDE
     Indication: HODGKIN^S DISEASE
     Route: 065
  2. VINORELBINE [Suspect]
     Active Substance: VINORELBINE\VINORELBINE TARTRATE
     Indication: HODGKIN^S DISEASE
     Route: 065
  3. CYTARABINE. [Concomitant]
     Active Substance: CYTARABINE
     Indication: HODGKIN^S DISEASE
     Route: 065
  4. DEXAMETHASONE. [Concomitant]
     Active Substance: DEXAMETHASONE
     Indication: HODGKIN^S DISEASE
     Route: 065
  5. IFOSFAMIDE. [Suspect]
     Active Substance: IFOSFAMIDE
     Indication: HODGKIN^S DISEASE
     Route: 065
  6. CISPLATIN. [Concomitant]
     Active Substance: CISPLATIN
     Indication: HODGKIN^S DISEASE
     Route: 065

REACTIONS (2)
  - Acute kidney injury [Fatal]
  - Pneumonia [Fatal]
